FAERS Safety Report 21263433 (Version 1)
Quarter: 2022Q3

REPORT INFORMATION
  Report Type: Spontaneous
  Country: ES (occurrence: ES)
  Receive Date: 20220829
  Receipt Date: 20220829
  Transmission Date: 20221027
  Serious: Yes (Other)
  Sender: FDA-Public Use
  Company Number: ES-Accord-273484

PATIENT
  Age: 52 Year
  Sex: Male

DRUGS (16)
  1. PREZISTA [Suspect]
     Active Substance: DARUNAVIR ETHANOLATE
     Indication: Product used for unknown indication
     Dosage: 600MG/12H
     Route: 065
     Dates: start: 20100824
  2. QUETIAPINE [Interacting]
     Active Substance: QUETIAPINE
     Indication: Product used for unknown indication
     Dosage: DOSAGE OF 300MG/12H
     Route: 065
     Dates: start: 20170426
  3. ZOLPIDEM [Concomitant]
     Active Substance: ZOLPIDEM TARTRATE
     Indication: Product used for unknown indication
     Dosage: 10MG/24H
     Route: 065
     Dates: start: 20190313
  4. GABAPENTIN [Concomitant]
     Active Substance: GABAPENTIN
     Indication: Product used for unknown indication
     Dosage: 600MG/8H
     Route: 065
     Dates: start: 20211015
  5. LORMETAZEPAM [Concomitant]
     Active Substance: LORMETAZEPAM
     Indication: Product used for unknown indication
     Dosage: 2MG/24H
     Route: 065
     Dates: start: 20171216
  6. ACETAMINOPHEN [Concomitant]
     Active Substance: ACETAMINOPHEN
     Indication: Product used for unknown indication
     Dosage: 1G/12H
     Route: 065
     Dates: start: 20210721
  7. OMEPRAZOLE [Concomitant]
     Active Substance: OMEPRAZOLE
     Indication: Product used for unknown indication
     Dosage: 40MG/24
     Route: 065
     Dates: start: 20191127
  8. ROSUVASTATIN [Concomitant]
     Active Substance: ROSUVASTATIN
     Indication: Product used for unknown indication
     Dosage: 5MG/24H
     Route: 065
     Dates: start: 20180511
  9. ETRAVIRINE [Concomitant]
     Active Substance: ETRAVIRINE
     Indication: Product used for unknown indication
     Dosage: 200MG/24H
     Route: 065
     Dates: start: 20140527
  10. CLORAZEPIC ACID [Concomitant]
     Active Substance: CLORAZEPIC ACID
     Indication: Product used for unknown indication
     Dosage: 15MG/4.5H
     Route: 065
     Dates: start: 20190221
  11. INSULIN GLARGINE [Concomitant]
     Active Substance: INSULIN GLARGINE
     Indication: Product used for unknown indication
     Dosage: 60IU/24H
     Route: 065
     Dates: start: 20190527
  12. LOSARTAN [Concomitant]
     Active Substance: LOSARTAN
     Indication: Product used for unknown indication
     Dosage: 100MG/24H
     Route: 065
     Dates: start: 20181013
  13. FENOFIBRATE [Concomitant]
     Active Substance: FENOFIBRATE
     Indication: Product used for unknown indication
     Dosage: 145MG/24H
     Route: 065
     Dates: start: 20200420
  14. METAMIZOLE [Concomitant]
     Active Substance: METAMIZOLE
     Indication: Product used for unknown indication
     Dosage: 575MG/8H
     Route: 065
     Dates: start: 20210707
  15. INSULIN ASPART [Concomitant]
     Active Substance: INSULIN ASPART
     Indication: Product used for unknown indication
     Dosage: 10IU/8H
     Route: 065
     Dates: start: 20200707
  16. DULAGLUTIDE [Concomitant]
     Active Substance: DULAGLUTIDE
     Indication: Product used for unknown indication
     Dosage: 1.5MG/7D
     Route: 065
     Dates: start: 20190529

REACTIONS (6)
  - Tachycardia [Recovered/Resolved]
  - Confusional state [Recovered/Resolved]
  - Restlessness [Recovered/Resolved]
  - Agitation [Recovered/Resolved]
  - Drug interaction [Unknown]
  - Insomnia [Recovered/Resolved]
